FAERS Safety Report 9995669 (Version 2)
Quarter: 2014Q2

REPORT INFORMATION
  Report Type: Spontaneous
  Country: IT (occurrence: None)
  Receive Date: 20140310
  Receipt Date: 20140502
  Transmission Date: 20141212
  Serious: Yes (Hospitalization)
  Sender: FDA-Public Use
  Company Number: 7273315

PATIENT
  Age: 61 Year
  Sex: Male

DRUGS (6)
  1. EUTIROX [Suspect]
     Indication: HYPOTHYROIDISM
     Route: 048
     Dates: start: 20140128, end: 20140218
  2. NIMODIPINE (NIMODIPINE) (NIMODIPINE) [Concomitant]
  3. CEFAZOLINE (CEFAZOLINE) [Concomitant]
  4. ESOMEPRAZOLE MAGNESIUM (ESOMEPRAZOLE MAGNESIUM) (ESOMEPRAZOLE MAGNESIUM) [Concomitant]
  5. MANNITOL (MANNITOL) (MANNITOL) [Concomitant]
  6. DINTOINA (PHENYTOIN SODIUM) (PHENYTOIN SODIUM) [Concomitant]

REACTIONS (2)
  - Drug ineffective [None]
  - Hypothyroidism [None]
